FAERS Safety Report 9523445 (Version 1)
Quarter: 2013Q1

REPORT INFORMATION
  Report Type: Spontaneous
  Country: US (occurrence: None)
  Receive Date: 20130305
  Receipt Date: 20130305
  Transmission Date: 20140127
  Serious: Yes (Other)
  Sender: FDA-Public Use
  Company Number: 163-21880-12012717

PATIENT
  Age: 64 Year
  Sex: Female
  Weight: 68.04 kg

DRUGS (9)
  1. REVLIMID [Suspect]
     Indication: PLASMA CELL MYELOMA
     Dosage: 10 MG, DAILY X 21 DAYS, PO
     Route: 048
     Dates: start: 20111129
  2. ATENOLOL (ATENOLOL) (UNKNOWN) [Concomitant]
  3. DOCUSATE SODIUM (DOCUSATE SODIUM) (UNKNOWN) [Concomitant]
  4. FOLIC ACID (FOLIC ACID) (UNKNOWN) [Concomitant]
  5. IRON [Concomitant]
  6. MULTIVITAMINS (MULTIVITAMINS) (UNKNOWN) [Concomitant]
  7. TYLENOL (PARACETAMOL) (UNKNOWN) [Concomitant]
  8. VALACYCLOVIR (VALACICLOVIR HYDROCHLORIDE) (UNKNOWN)? [Concomitant]
  9. VITAMIN C [Concomitant]

REACTIONS (1)
  - Rectal haemorrhage [None]
